FAERS Safety Report 9641303 (Version 3)
Quarter: 2014Q1

REPORT INFORMATION
  Report Type: Spontaneous
  Country: US (occurrence: US)
  Receive Date: 20131023
  Receipt Date: 20140206
  Transmission Date: 20141002
  Serious: Yes (Hospitalization, Other)
  Sender: FDA-Public Use
  Company Number: US-ASTRAZENECA-2013SE76398

PATIENT
  Age: 846 Month
  Sex: Female
  Weight: 72.1 kg

DRUGS (19)
  1. ARIMIDEX [Suspect]
     Indication: INVASIVE LOBULAR BREAST CARCINOMA
     Route: 048
     Dates: start: 201205
  2. ARIMIDEX [Suspect]
     Indication: BREAST CANCER STAGE IV
     Route: 048
     Dates: start: 201205
  3. PROPRANOLOL [Suspect]
     Indication: ATRIAL FIBRILLATION
     Route: 048
  4. PROPRANOLOL [Suspect]
     Indication: ATRIAL FIBRILLATION
     Dosage: TAKING PRN
     Route: 048
  5. PROPRANOLOL [Suspect]
     Indication: ATRIAL FIBRILLATION
     Route: 048
  6. ANTIBIOTICS [Suspect]
     Dosage: TOO MANY
     Route: 065
  7. AMIODARONE [Suspect]
     Indication: ATRIAL FIBRILLATION
     Route: 065
  8. ASPIRIN [Concomitant]
     Indication: ATRIAL FIBRILLATION
     Route: 048
     Dates: end: 2013
  9. ASPIRIN [Concomitant]
     Indication: ANTICOAGULANT THERAPY
     Route: 048
     Dates: end: 2013
  10. ASPIRIN [Concomitant]
     Indication: ATRIAL FIBRILLATION
     Route: 048
     Dates: start: 2013
  11. ASPIRIN [Concomitant]
     Indication: ANTICOAGULANT THERAPY
     Route: 048
     Dates: start: 2013
  12. CALTRATE WITH VITAMIN D [Concomitant]
     Route: 048
  13. DILTIAZEM [Concomitant]
     Indication: ATRIAL FIBRILLATION
     Route: 048
     Dates: start: 2007
  14. DILTIAZEM [Concomitant]
     Indication: ATRIAL FIBRILLATION
     Route: 048
  15. DENOSUMAB [Concomitant]
     Indication: BONE DISORDER
     Dosage: MONTH
  16. BRITTLE BONE SHOT [Concomitant]
     Dosage: ONCE A MONTH
  17. CALCIUM [Concomitant]
  18. POTASSIUM [Concomitant]
  19. XGEVA [Concomitant]
     Indication: BONE DISORDER

REACTIONS (21)
  - Mental disorder [Unknown]
  - Urinary tract infection [Not Recovered/Not Resolved]
  - Atrial fibrillation [Not Recovered/Not Resolved]
  - Chest pain [Recovered/Resolved]
  - Bone cancer [Recovered/Resolved]
  - Diverticulitis [Unknown]
  - Tongue discolouration [Not Recovered/Not Resolved]
  - Anxiety [Not Recovered/Not Resolved]
  - Mood swings [Not Recovered/Not Resolved]
  - Depressed mood [Not Recovered/Not Resolved]
  - Insomnia [Not Recovered/Not Resolved]
  - Menopausal symptoms [Unknown]
  - Nephrolithiasis [Unknown]
  - Disease recurrence [Recovered/Resolved]
  - Malaise [Unknown]
  - Nausea [Recovered/Resolved]
  - Osteoarthritis [Not Recovered/Not Resolved]
  - Hot flush [Recovered/Resolved]
  - Vomiting [Unknown]
  - Diarrhoea [Unknown]
  - Intentional drug misuse [Unknown]
